FAERS Safety Report 4667490-0 (Version None)
Quarter: 2005Q2

REPORT INFORMATION
  Report Type: 
  Country: None (occurrence: None)
  Receive Date: 20050520
  Receipt Date: 20050512
  Transmission Date: 20051028
  Serious: Yes (Life-Threatening, Hospitalization, Other)
  Sender: FDA-Public Use
  Company Number: 200514162US

PATIENT
  Age: 67 Year
  Sex: Male

DRUGS (5)
  1. LOVENOX [Suspect]
     Route: 058
     Dates: start: 20040707, end: 20040707
  2. ASPIRIN [Suspect]
     Dosage: DOSE: UNK
     Dates: start: 20040707
  3. HEPARIN [Suspect]
     Dosage: DOSE UNIT: UNITS
     Route: 042
     Dates: start: 20040707
  4. NITROGLYCERIN [Suspect]
  5. EPTIFIBATIDE [Suspect]

REACTIONS (3)
  - CEREBROVASCULAR ACCIDENT [None]
  - DYSARTHRIA [None]
  - HYPOTENSION [None]
